FAERS Safety Report 6644717-7 (Version None)
Quarter: 2010Q1

REPORT INFORMATION
  Report Type: 
  Country: None (occurrence: None)
  Receive Date: 20100305
  Receipt Date: 20100219
  Transmission Date: 20100710
  Serious: No
  Sender: FDA-Public Use
  Company Number: 2010-00274

PATIENT
  Age: 35 Year
  Sex: Male
  Weight: 70.3075 kg

DRUGS (1)
  1. ZICAM COLD REMEDY RAPIDMELTS [Suspect]
     Dosage: QID- 1 DAY
     Dates: start: 20100218, end: 20100219

REACTIONS (2)
  - AGEUSIA [None]
  - ANOSMIA [None]
